FAERS Safety Report 5742925-0 (Version None)
Quarter: 2008Q2

REPORT INFORMATION
  Report Type: 
  Country: None (occurrence: None)
  Receive Date: 20080519
  Receipt Date: 20080513
  Transmission Date: 20081010
  Serious: Yes (Death, Other)
  Sender: FDA-Public Use
  Company Number: US-BRISTOL-MYERS SQUIBB COMPANY-14193866

PATIENT
  Age: 43 Year
  Sex: Male

DRUGS (3)
  1. CYCLOPHOSPHAMIDE [Suspect]
     Indication: BONE MARROW CONDITIONING REGIMEN
  2. CARMUSTINE [Suspect]
     Indication: BONE MARROW CONDITIONING REGIMEN
  3. ETOPOSIDE [Suspect]
     Indication: BONE MARROW CONDITIONING REGIMEN

REACTIONS (4)
  - LIVER TRANSPLANT [None]
  - PNEUMONIA [None]
  - THROMBOTIC THROMBOCYTOPENIC PURPURA [None]
  - VENOOCCLUSIVE LIVER DISEASE [None]
